FAERS Safety Report 21034916 (Version 2)
Quarter: 2022Q3

REPORT INFORMATION
  Report Type: Spontaneous
  Country: US (occurrence: US)
  Receive Date: 20220701
  Receipt Date: 20220713
  Transmission Date: 20221027
  Serious: Yes (Other)
  Sender: FDA-Public Use
  Company Number: US-PFIZER INC-202200912408

PATIENT
  Age: 81 Year
  Sex: Female
  Weight: 48.98 kg

DRUGS (1)
  1. PAXLOVID [Suspect]
     Active Substance: NIRMATRELVIR\RITONAVIR
     Indication: COVID-19 treatment
     Dosage: 150 MG, 2X/DAY
     Dates: start: 20220627, end: 20220629

REACTIONS (6)
  - Rectal haemorrhage [Recovered/Resolved]
  - Haemorrhoidal haemorrhage [Recovering/Resolving]
  - Abdominal discomfort [Recovered/Resolved]
  - Abdominal pain [Unknown]
  - Dysgeusia [Unknown]
  - Incorrect dose administered [Unknown]

NARRATIVE: CASE EVENT DATE: 20220627
